FAERS Safety Report 25645843 (Version 1)
Quarter: 2025Q3

REPORT INFORMATION
  Report Type: Spontaneous
  Country: EU (occurrence: EU)
  Receive Date: 20250805
  Receipt Date: 20250805
  Transmission Date: 20251020
  Serious: Yes (Other)
  Sender: BRACCO
  Company Number: EU-BRACCO-2025NO04087

PATIENT
  Age: 54 Year
  Sex: Female

DRUGS (1)
  1. IOMERON [Suspect]
     Active Substance: IOMEPROL
     Indication: Computerised tomogram abdomen
     Dates: start: 20250616, end: 20250616

REACTIONS (6)
  - Product substitution issue [Unknown]
  - Syncope [Unknown]
  - Seizure [Unknown]
  - Nausea [Unknown]
  - Erythema [Unknown]
  - Contrast media reaction [Unknown]

NARRATIVE: CASE EVENT DATE: 20250616
